FAERS Safety Report 10377655 (Version 2)
Quarter: 2014Q3

REPORT INFORMATION
  Report Type: Spontaneous
  Country: IT (occurrence: IT)
  Receive Date: 20140812
  Receipt Date: 20140829
  Transmission Date: 20150326
  Serious: Yes (Other)
  Sender: FDA-Public Use
  Company Number: PHHY2014IT097282

PATIENT
  Age: 30 Year

DRUGS (2)
  1. ALFAFLOR [Concomitant]
     Dosage: UNK UKN, UNK
     Route: 031
  2. CICLOSPORIN [Suspect]
     Active Substance: CYCLOSPORINE
     Indication: KERATOCONUS
     Dosage: 2 DRP, DAILY
     Route: 031

REACTIONS (3)
  - Off label use [Recovered/Resolved]
  - Eye irritation [Recovered/Resolved]
  - Urticaria [Recovered/Resolved]

NARRATIVE: CASE EVENT DATE: 20140722
